FAERS Safety Report 20115017 (Version 1)
Quarter: 2021Q4

REPORT INFORMATION
  Report Type: Spontaneous
  Country: US (occurrence: US)
  Receive Date: 20211125
  Receipt Date: 20211125
  Transmission Date: 20220303
  Serious: Yes (Other)
  Sender: FDA-Public Use
  Company Number: US-SA-SAC20211125000314

PATIENT
  Sex: Female

DRUGS (1)
  1. TAXOTERE [Suspect]
     Active Substance: DOCETAXEL
     Indication: Breast cancer
     Dosage: RECEIVED A TOTAL OF TWELVE ROUNDS OF CHEMOTHERAPY

REACTIONS (6)
  - Dacryostenosis acquired [Unknown]
  - Dry eye [Unknown]
  - Eye infection [Unknown]
  - Eye irritation [Unknown]
  - Post procedural infection [Unknown]
  - Lacrimation increased [Not Recovered/Not Resolved]
